FAERS Safety Report 10681853 (Version 1)
Quarter: 2014Q4

REPORT INFORMATION
  Report Type: Spontaneous
  Country: US (occurrence: None)
  Receive Date: 20141224
  Receipt Date: 20141224
  Transmission Date: 20150529
  Serious: Yes (Hospitalization)
  Sender: FDA-Public Use
  Company Number: 2014SA172704

PATIENT
  Age: 15 Year
  Sex: Female

DRUGS (3)
  1. IBUPROFEN. [Suspect]
     Active Substance: IBUPROFEN
     Route: 048
  2. SALICYLIC ACID. [Suspect]
     Active Substance: SALICYLIC ACID
     Route: 048
  3. BISMUTH SUBSALICYLATE. [Suspect]
     Active Substance: BISMUTH SUBSALICYLATE
     Route: 048

REACTIONS (7)
  - Intentional overdose [None]
  - Exposure via ingestion [None]
  - Metabolic acidosis [None]
  - Tinnitus [None]
  - Abdominal pain [None]
  - Tachypnoea [None]
  - Bezoar [None]
